FAERS Safety Report 9744159 (Version 2)
Quarter: 2013Q4

REPORT INFORMATION
  Report Type: Spontaneous
  Country: FR (occurrence: FR)
  Receive Date: 20131210
  Receipt Date: 20131227
  Transmission Date: 20140711
  Serious: Yes (Death, Hospitalization, Other)
  Sender: FDA-Public Use
  Company Number: FR-PFIZER INC-2013347108

PATIENT
  Age: 64 Year
  Sex: Female

DRUGS (13)
  1. TAHOR [Suspect]
     Indication: HYPERCHOLESTEROLAEMIA
     Dosage: 10 MG, 1X/DAY
     Route: 048
     Dates: end: 20130909
  2. ARICEPT [Suspect]
     Indication: DEMENTIA
     Dosage: 10 MG, 1X/DAY
     Route: 048
     Dates: end: 20130829
  3. PREVISCAN [Suspect]
     Indication: ATRIAL FIBRILLATION
     Dosage: DOSAGE ADJUSTED FOR INR BETWEEN 2 AND 3
     Route: 048
     Dates: end: 20130829
  4. EBIXA [Suspect]
     Indication: DEMENTIA
     Dosage: 20 MG, 1X/DAY
     Route: 048
     Dates: end: 20130829
  5. ATHYMIL [Suspect]
     Indication: PRODUCT USED FOR UNKNOWN INDICATION
     Dosage: 15 MG, 1X/DAY
     Route: 048
     Dates: end: 20130829
  6. RISPERDAL [Suspect]
     Indication: PRODUCT USED FOR UNKNOWN INDICATION
     Dosage: 1 MG, 1X/DAY
     Route: 048
     Dates: end: 20130829
  7. TAREG [Suspect]
     Indication: HYPERTENSION
     Dosage: 40 MG, 1X/DAY
     Route: 048
     Dates: end: 20130829
  8. LASILIX [Suspect]
     Indication: HYPERTENSION
     Dosage: 40 MG, 1X/DAY
     Route: 048
     Dates: end: 20130829
  9. CARDENSIEL [Suspect]
     Indication: HYPERTENSION
     Dosage: 2.5 MG, 1X/DAY
     Route: 048
     Dates: end: 20130829
  10. INEXIUM [Suspect]
     Dosage: 20 MG, DAILY
     Route: 048
     Dates: end: 20130829
  11. LANTUS [Suspect]
     Indication: PRODUCT USED FOR UNKNOWN INDICATION
     Dosage: 100 IU/ML
     Route: 058
     Dates: end: 20130829
  12. ZYLORIC [Suspect]
     Indication: HYPERURICAEMIA
     Dosage: 100 MG, 1X/DAY
     Route: 058
     Dates: end: 20130829
  13. NOVORAPID [Concomitant]
     Dosage: UNK

REACTIONS (3)
  - Subdural haematoma [Fatal]
  - Sepsis [Unknown]
  - Pneumonia aspiration [Unknown]
